FAERS Safety Report 12594444 (Version 5)
Quarter: 2017Q1

REPORT INFORMATION
  Report Type: Spontaneous
  Country: AR (occurrence: AR)
  Receive Date: 20160726
  Receipt Date: 20170202
  Transmission Date: 20170428
  Serious: Yes (Hospitalization, Other)
  Sender: FDA-Public Use
  Company Number: AR-GILEAD-2016-0224903

PATIENT
  Age: 61 Year
  Sex: Male

DRUGS (2)
  1. AMBRISENTAN [Suspect]
     Active Substance: AMBRISENTAN
     Indication: PULMONARY HYPERTENSION
     Dosage: UNK
     Route: 065
     Dates: start: 20110101
  2. SINTROM [Suspect]
     Active Substance: ACENOCOUMAROL
     Indication: PRODUCT USED FOR UNKNOWN INDICATION
     Route: 065

REACTIONS (8)
  - Arrhythmia [Recovered/Resolved]
  - Fall [Unknown]
  - Head injury [Unknown]
  - Intentional product misuse [Unknown]
  - Syncope [Unknown]
  - Hypotension [Unknown]
  - Product availability issue [Unknown]
  - Feeling hot [Unknown]

NARRATIVE: CASE EVENT DATE: 20170117
